FAERS Safety Report 15259016 (Version 1)
Quarter: 2018Q3

REPORT INFORMATION
  Report Type: Spontaneous
  Country: US (occurrence: US)
  Receive Date: 20180718
  Receipt Date: 20180718
  Transmission Date: 20181010
  Serious: Yes (Death)
  Sender: FDA-Public Use
  Company Number: None

PATIENT
  Age: 44 Year
  Sex: Male

DRUGS (18)
  1. THERAGRAN [Concomitant]
     Active Substance: VITAMINS
  2. MICRO K [Concomitant]
  3. SOD CHLOR [Concomitant]
  4. ELIQUIS [Concomitant]
     Active Substance: APIXABAN
  5. DILAUDID [Concomitant]
     Active Substance: HYDROMORPHONE HYDROCHLORIDE
  6. DEXAMETH PHO INJ [Concomitant]
  7. SIMETHICONE (DIMETHICONE) [Concomitant]
     Active Substance: DIMETHICONE
  8. LOPERAMIDE [Concomitant]
     Active Substance: LOPERAMIDE
  9. ALECENSA [Suspect]
     Active Substance: ALECTINIB HYDROCHLORIDE
     Indication: LUNG NEOPLASM MALIGNANT
     Route: 048
     Dates: start: 20171127
  10. FENTYL [Concomitant]
     Active Substance: FENTANYL
  11. MIDODRINE [Concomitant]
     Active Substance: MIDODRINE
  12. IPRATROPIUM/SOL ALBUTEROL [Concomitant]
  13. THIAMINE [Concomitant]
     Active Substance: THIAMINE
  14. FLUIDROCORT [Concomitant]
  15. LIDODERM [Concomitant]
     Active Substance: LIDOCAINE
  16. ONDANSETRON [Concomitant]
     Active Substance: ONDANSETRON
  17. FLORANEX [Concomitant]
     Active Substance: LACTOBACILLUS ACIDOPHILUS\LACTOBACILLUS DELBRUECKII SUBSP. BULGARICUS
  18. KEPPRA [Concomitant]
     Active Substance: LEVETIRACETAM

REACTIONS (1)
  - Death [None]

NARRATIVE: CASE EVENT DATE: 20180713
